FAERS Safety Report 9820458 (Version 1)
Quarter: 2014Q1

REPORT INFORMATION
  Report Type: Spontaneous
  Country: US (occurrence: None)
  Receive Date: 20140114
  Receipt Date: 20140114
  Transmission Date: 20141002
  Serious: No
  Sender: FDA-Public Use
  Company Number: None

PATIENT
  Age: 84 None
  Sex: Female

DRUGS (15)
  1. NAMENDA XR [Suspect]
     Indication: DEMENTIA ALZHEIMER^S TYPE
     Route: 048
     Dates: start: 20131101, end: 20131211
  2. BENICAR [Concomitant]
  3. LABETALOL HCL [Concomitant]
  4. LEXAPRO [Concomitant]
  5. EXELON PATCH [Concomitant]
  6. EYE VITAMINS [Concomitant]
  7. CALCIM AND VITAMIN D [Concomitant]
  8. LOW DOSE ASPIRIN [Concomitant]
  9. FERROUS SULFATE [Concomitant]
  10. FISH OIL [Concomitant]
  11. FOLIC ACID [Concomitant]
  12. MULTIVITAMIN [Concomitant]
  13. PHILIPS COLON HEALTH [Concomitant]
  14. POTTASIUM GLUCONATE [Concomitant]
  15. VITAMIN D3 [Concomitant]

REACTIONS (3)
  - Hypersomnia [None]
  - Fatigue [None]
  - Feeling abnormal [None]
